FAERS Safety Report 7583080-4 (Version None)
Quarter: 2011Q2

REPORT INFORMATION
  Report Type: 
  Country: None (occurrence: None)
  Receive Date: 20110630
  Receipt Date: 20110621
  Transmission Date: 20111010
  Serious: Yes (Hospitalization)
  Sender: FDA-Public Use
  Company Number: US-ELI_LILLY_AND_COMPANY-US201105006543

PATIENT
  Age: 67 Year
  Sex: Female

DRUGS (4)
  1. VITAMIN B-12 [Concomitant]
     Dosage: 1000 UG, MONTHLY (1/M)
     Route: 058
  2. ALIMTA [Suspect]
     Dosage: 950 MG, EVERY 21 DAYS
     Route: 042
     Dates: start: 20110317, end: 20110413
  3. FOLIC ACID [Concomitant]
     Dosage: 1 MG, QD
     Route: 048
     Dates: start: 20110609
  4. CORTICOSTEROIDS [Concomitant]
     Dosage: 10 MG, UNKNOWN
     Route: 042

REACTIONS (6)
  - HAEMORRHAGE [None]
  - ABDOMINAL PAIN [None]
  - METASTASES TO SPINE [None]
  - PANCYTOPENIA [None]
  - SEPSIS [None]
  - HYPOTENSION [None]
